FAERS Safety Report 7109884-X (Version None)
Quarter: 2010Q4

REPORT INFORMATION
  Report Type: 
  Country: None (occurrence: None)
  Receive Date: 20101116
  Receipt Date: 20101116
  Transmission Date: 20110411
  Serious: Yes (Other)
  Sender: FDA-Public Use
  Company Number: None

PATIENT
  Age: 14 Year
  Sex: Male
  Weight: 52.1 kg

DRUGS (1)
  1. ADDERALL XR 20 [Suspect]
     Indication: ATTENTION DEFICIT/HYPERACTIVITY DISORDER
     Dosage: 40 MG ONCE DAILY PO
     Route: 048
     Dates: start: 20030101, end: 20101001

REACTIONS (3)
  - MIGRAINE [None]
  - SEIZURE ANOXIC [None]
  - SYNCOPE [None]
